FAERS Safety Report 23950381 (Version 1)
Quarter: 2024Q2

REPORT INFORMATION
  Report Type: Spontaneous
  Country: PH (occurrence: None)
  Receive Date: 20240607
  Receipt Date: 20240607
  Transmission Date: 20240716
  Serious: Yes (Death)
  Sender: FDA-Public Use
  Company Number: 2024A131318

PATIENT
  Age: 25242 Day
  Sex: Male

DRUGS (1)
  1. IMFINZI [Suspect]
     Active Substance: DURVALUMAB
     Indication: Hepatic cancer
     Dosage: 500.0MG UNKNOWN
     Route: 042
     Dates: start: 202308, end: 202404

REACTIONS (1)
  - Death [Fatal]

NARRATIVE: CASE EVENT DATE: 20240603
